FAERS Safety Report 23408905 (Version 3)
Quarter: 2024Q1

REPORT INFORMATION
  Report Type: Spontaneous
  Country: SE (occurrence: SE)
  Receive Date: 20240117
  Receipt Date: 20240216
  Transmission Date: 20240410
  Serious: Yes (Death, Other)
  Sender: FDA-Public Use
  Company Number: SE-GLAXOSMITHKLINE-SE2024EME004369

PATIENT

DRUGS (3)
  1. BUPROPION HYDROCHLORIDE [Suspect]
     Active Substance: BUPROPION HYDROCHLORIDE
     Indication: Product used for unknown indication
     Dosage: 150 MG, BID
     Route: 048
  2. BUPROPION HYDROCHLORIDE [Suspect]
     Active Substance: BUPROPION HYDROCHLORIDE
     Dosage: 300 MG, QD
     Route: 048
  3. BRINTELLIX [Suspect]
     Active Substance: VORTIOXETINE HYDROBROMIDE
     Indication: Product used for unknown indication
     Dosage: 5 MG, QD

REACTIONS (10)
  - Death [Fatal]
  - Completed suicide [Unknown]
  - Condition aggravated [Unknown]
  - Aggression [Unknown]
  - Erythema [Unknown]
  - Flushing [Unknown]
  - Hot flush [Unknown]
  - Psychotic disorder [Unknown]
  - Depressed mood [Unknown]
  - Drug ineffective [Unknown]
